FAERS Safety Report 25143246 (Version 2)
Quarter: 2025Q2

REPORT INFORMATION
  Report Type: Spontaneous
  Country: JP (occurrence: JP)
  Receive Date: 20250401
  Receipt Date: 20250408
  Transmission Date: 20250716
  Serious: Yes (Hospitalization, Other)
  Sender: BRISTOL MYERS SQUIBB
  Company Number: JP-BRISTOL-MYERS SQUIBB COMPANY-2025-043121

PATIENT
  Age: 49 Year
  Sex: Male

DRUGS (9)
  1. YERVOY [Suspect]
     Active Substance: IPILIMUMAB
     Indication: Renal cell carcinoma
     Dosage: 4 TIMES
     Route: 041
     Dates: start: 20240423, end: 20240423
  2. YERVOY [Suspect]
     Active Substance: IPILIMUMAB
     Dosage: 4 TIMES
     Route: 041
     Dates: start: 20240514, end: 20240514
  3. YERVOY [Suspect]
     Active Substance: IPILIMUMAB
     Dosage: 4 TIMES
     Route: 041
     Dates: start: 20240604, end: 20240604
  4. YERVOY [Suspect]
     Active Substance: IPILIMUMAB
     Dosage: 4 TIMES
     Route: 041
     Dates: start: 20240625, end: 20240625
  5. OPDIVO [Suspect]
     Active Substance: NIVOLUMAB
     Indication: Renal cell carcinoma
     Route: 041
     Dates: start: 20240423, end: 20240423
  6. OPDIVO [Suspect]
     Active Substance: NIVOLUMAB
     Route: 041
     Dates: start: 20240514, end: 20240514
  7. OPDIVO [Suspect]
     Active Substance: NIVOLUMAB
     Route: 041
     Dates: start: 20240604, end: 20240604
  8. OPDIVO [Suspect]
     Active Substance: NIVOLUMAB
     Route: 041
     Dates: start: 20240625, end: 20240625
  9. OPDIVO [Suspect]
     Active Substance: NIVOLUMAB
     Route: 041
     Dates: start: 20240723, end: 20250220

REACTIONS (3)
  - Immune-mediated cystitis [Recovering/Resolving]
  - Colitis [Recovering/Resolving]
  - Skin disorder [Not Recovered/Not Resolved]

NARRATIVE: CASE EVENT DATE: 20240502
